FAERS Safety Report 26046198 (Version 1)
Quarter: 2025Q4

REPORT INFORMATION
  Report Type: Report from Study
  Country: US (occurrence: US)
  Receive Date: 20251114
  Receipt Date: 20251114
  Transmission Date: 20260117
  Serious: No
  Sender: SOLENO THERAPEUTICS
  Company Number: US-SOLENO THERAPEUTICS, INC.-SOL2025000753

PATIENT
  Age: 20 Year
  Sex: Female
  Weight: 92 kg

DRUGS (10)
  1. DIAZOXIDE CHOLINE [Suspect]
     Active Substance: DIAZOXIDE CHOLINE
     Indication: Prader-Willi syndrome
     Dosage: UNK
     Route: 048
     Dates: start: 20250917, end: 2025
  2. DIAZOXIDE CHOLINE [Suspect]
     Active Substance: DIAZOXIDE CHOLINE
     Dosage: 150 MILLIGRAM, QD
     Route: 048
     Dates: start: 2025, end: 2025
  3. DIAZOXIDE CHOLINE [Suspect]
     Active Substance: DIAZOXIDE CHOLINE
     Dosage: 225 MILLIGRAM, QD
     Route: 048
     Dates: start: 2025, end: 2025
  4. DIAZOXIDE CHOLINE [Suspect]
     Active Substance: DIAZOXIDE CHOLINE
     Dosage: 225 MILLIGRAM, QD
     Route: 048
     Dates: start: 202510, end: 202510
  5. DIAZOXIDE CHOLINE [Suspect]
     Active Substance: DIAZOXIDE CHOLINE
     Dosage: 300 MILLIGRAM, QD
     Route: 048
     Dates: start: 20251026, end: 20251028
  6. GENOTROPIN [Concomitant]
     Active Substance: SOMATROPIN
     Indication: Product used for unknown indication
     Dosage: UNK
     Route: 065
  7. FLONASE [Concomitant]
     Active Substance: FLUTICASONE PROPIONATE
     Indication: Product used for unknown indication
     Dosage: UNK
     Route: 065
  8. SINGULAIR [Concomitant]
     Active Substance: MONTELUKAST SODIUM
     Indication: Product used for unknown indication
     Dosage: UNK
     Route: 065
  9. DUPIXENT [Concomitant]
     Active Substance: DUPILUMAB
     Indication: Product used for unknown indication
     Dosage: UNK
     Route: 065
  10. LOESTRIN NOS [Concomitant]
     Active Substance: ETHINYL ESTRADIOL\NORETHINDRONE ACETATE
     Indication: Product used for unknown indication
     Dosage: UNK
     Route: 065

REACTIONS (3)
  - Dermatitis contact [Not Recovered/Not Resolved]
  - Pyrexia [Unknown]
  - Oedema peripheral [Unknown]

NARRATIVE: CASE EVENT DATE: 20251001
